FAERS Safety Report 13898296 (Version 2)
Quarter: 2017Q3

REPORT INFORMATION
  Report Type: Spontaneous
  Country: JP (occurrence: JP)
  Receive Date: 20170824
  Receipt Date: 20170906
  Transmission Date: 20171127
  Serious: Yes (Other)
  Sender: FDA-Public Use
  Company Number: JP-ASTRAZENECA-2017SE85489

PATIENT
  Sex: Female

DRUGS (1)
  1. FASLODEX [Suspect]
     Active Substance: FULVESTRANT
     Indication: BREAST CANCER FEMALE
     Dosage: 500.0MG ONCE/SINGLE ADMINISTRATION
     Route: 030
     Dates: start: 20170731

REACTIONS (4)
  - Metastases to central nervous system [Unknown]
  - Disorientation [Unknown]
  - Cognitive disorder [Unknown]
  - Brain oedema [Unknown]

NARRATIVE: CASE EVENT DATE: 20170814
